FAERS Safety Report 16561386 (Version 3)
Quarter: 2020Q4

REPORT INFORMATION
  Report Type: Spontaneous
  Country: US (occurrence: US)
  Receive Date: 20190711
  Receipt Date: 20201224
  Transmission Date: 20210113
  Serious: Yes (Other)
  Sender: FDA-Public Use
  Company Number: US-BAYER-2018-245452

PATIENT
  Age: 38 Year
  Sex: Female

DRUGS (6)
  1. IBUPROFEN. [Concomitant]
     Active Substance: IBUPROFEN
     Dosage: 800 MG
  2. MEDROXYPROGESTERONE ACETATE. [Concomitant]
     Active Substance: MEDROXYPROGESTERONE ACETATE
  3. MIRENA [Suspect]
     Active Substance: LEVONORGESTREL
     Dosage: 20 ?G PER DAY, CONTINUOUSLY
     Route: 015
     Dates: start: 201805
  4. ACETAMINOPHEN. [Concomitant]
     Active Substance: ACETAMINOPHEN
  5. DIAZEPAM. [Concomitant]
     Active Substance: DIAZEPAM
     Dosage: 10 MG
  6. PREDNISONE. [Concomitant]
     Active Substance: PREDNISONE
     Dosage: 50 MG

REACTIONS (12)
  - Dyspareunia [Unknown]
  - Vaginal discharge [Unknown]
  - Device breakage [Unknown]
  - Pregnancy with contraceptive device [Unknown]
  - Dysmenorrhoea [Unknown]
  - Pelvic pain [Unknown]
  - Abdominal pain lower [Unknown]
  - Varicose vein [Unknown]
  - Abortion spontaneous [Unknown]
  - Urinary tract infection [Unknown]
  - Hemianaesthesia [Unknown]
  - Device monitoring procedure not performed [Unknown]

NARRATIVE: CASE EVENT DATE: 2016
